FAERS Safety Report 22028573 (Version 3)
Quarter: 2023Q2

REPORT INFORMATION
  Report Type: Spontaneous
  Country: US (occurrence: US)
  Receive Date: 20230223
  Receipt Date: 20230428
  Transmission Date: 20230721
  Serious: Yes (Other)
  Sender: FDA-Public Use
  Company Number: US-BAYER-2023A019544

PATIENT
  Age: 49 Year
  Sex: Female
  Weight: 104.3 kg

DRUGS (3)
  1. MIRENA [Suspect]
     Active Substance: LEVONORGESTREL
     Indication: Contraception
     Dosage: 20?G/DAY
     Route: 015
     Dates: start: 20230109
  2. NAPROXEN [Concomitant]
     Active Substance: NAPROXEN
  3. IRON [Concomitant]
     Active Substance: IRON

REACTIONS (3)
  - Pelvic pain [None]
  - Medical device pain [None]
  - Embedded device [None]

NARRATIVE: CASE EVENT DATE: 20230207
